FAERS Safety Report 20649165 (Version 7)
Quarter: 2022Q4

REPORT INFORMATION
  Report Type: Report from Study
  Country: US (occurrence: US)
  Receive Date: 20220329
  Receipt Date: 20221215
  Transmission Date: 20230112
  Serious: Yes (Other)
  Sender: FDA-Public Use
  Company Number: US-NOVARTISTESTPH-NVSC2022US071152

PATIENT
  Age: 62 Year
  Sex: Male

DRUGS (2)
  1. KESIMPTA [Suspect]
     Active Substance: OFATUMUMAB
     Indication: Relapsing multiple sclerosis
     Dosage: 20 MG, QMO
     Route: 058
     Dates: start: 20220208
  2. KESIMPTA [Suspect]
     Active Substance: OFATUMUMAB
     Indication: Multiple sclerosis
     Dosage: UNK (3RD DOSE)
     Route: 065
     Dates: start: 20220302

REACTIONS (7)
  - Malignant melanoma [Not Recovered/Not Resolved]
  - Multiple sclerosis relapse [Unknown]
  - Headache [Not Recovered/Not Resolved]
  - Myalgia [Unknown]
  - Herpes zoster [Recovering/Resolving]
  - Emotional distress [Not Recovered/Not Resolved]
  - Anger [Unknown]

NARRATIVE: CASE EVENT DATE: 20220208
